FAERS Safety Report 18125557 (Version 1)
Quarter: 2020Q3

REPORT INFORMATION
  Report Type: Spontaneous
  Country: US (occurrence: US)
  Receive Date: 20200807
  Receipt Date: 20200807
  Transmission Date: 20201103
  Serious: No
  Sender: FDA-Public Use
  Company Number: US-ROCHE-2556941

PATIENT
  Sex: Female
  Weight: 53 kg

DRUGS (1)
  1. PERJETA [Suspect]
     Active Substance: PERTUZUMAB
     Indication: CHEMOTHERAPY
     Dosage: 420 MG/14 ML
     Route: 042
     Dates: start: 20200116

REACTIONS (2)
  - Diarrhoea [Unknown]
  - Malaise [Unknown]
